FAERS Safety Report 21373724 (Version 1)
Quarter: 2022Q3

REPORT INFORMATION
  Report Type: Spontaneous
  Country: ES (occurrence: ES)
  Receive Date: 20220926
  Receipt Date: 20220926
  Transmission Date: 20221027
  Serious: Yes (Other)
  Sender: FDA-Public Use
  Company Number: ES-JNJFOC-20220925956

PATIENT
  Age: 61 Year
  Sex: Male

DRUGS (1)
  1. IMBRUVICA [Suspect]
     Active Substance: IBRUTINIB
     Indication: Mantle cell lymphoma
     Route: 048

REACTIONS (10)
  - Pancytopenia [Unknown]
  - Aspergillus infection [Unknown]
  - Generalised oedema [Unknown]
  - Bronchopulmonary aspergillosis [Unknown]
  - Myelosuppression [Unknown]
  - Systemic toxicity [Unknown]
  - Off label use [Unknown]
  - Ecchymosis [Unknown]
  - Febrile neutropenia [Unknown]
  - Mantle cell lymphoma recurrent [Unknown]
